FAERS Safety Report 18890518 (Version 2)
Quarter: 2021Q2

REPORT INFORMATION
  Report Type: Spontaneous
  Country: US (occurrence: US)
  Receive Date: 20210214
  Receipt Date: 20210416
  Transmission Date: 20210717
  Serious: No
  Sender: FDA-Public Use
  Company Number: US-SA-2021SA044006

PATIENT
  Age: 63 Year
  Sex: Female

DRUGS (1)
  1. DUPIXENT [Suspect]
     Active Substance: DUPILUMAB
     Dosage: 300 MG, QOW
     Route: 058
     Dates: start: 20200911

REACTIONS (6)
  - Trichoglossia [Unknown]
  - Rash [Unknown]
  - Pruritus [Unknown]
  - Injection site bruising [Unknown]
  - Headache [Unknown]
  - Skin texture abnormal [Unknown]

NARRATIVE: CASE EVENT DATE: 20210125
